FAERS Safety Report 6714343-X (Version None)
Quarter: 2010Q2

REPORT INFORMATION
  Report Type: 
  Country: None (occurrence: None)
  Receive Date: 20100504
  Receipt Date: 20100428
  Transmission Date: 20101027
  Serious: Yes (Death, Hospitalization, Other)
  Sender: FDA-Public Use
  Company Number: 2010US000124

PATIENT
  Age: 50 Year
  Sex: Male
  Weight: 62 kg

DRUGS (14)
  1. PROGRAF [Suspect]
     Indication: HEART TRANSPLANT
     Dosage: 1 MG, UID/QD, ORAL
     Route: 048
     Dates: start: 20090325, end: 20090614
  2. CELLCEPT [Suspect]
     Indication: HEART TRANSPLANT
     Dosage: 1000 MG, BID,
  3. PREDNISONE TAB [Concomitant]
  4. BACTRIM DS [Concomitant]
  5. MYCELEX [Concomitant]
  6. PRILOSEC (OMEPRAZOLE) [Concomitant]
  7. MIRALAX [Concomitant]
  8. COLACE (DOCUSATE SODIUM) [Concomitant]
  9. PROCRIT [Concomitant]
  10. PROAMATINE [Concomitant]
  11. MIRAPEX [Concomitant]
  12. NEPHROCAPS (VITAMINS NOS) [Concomitant]
  13. PROPOXYPHENE (DEXTROPROPOXYPHENE) TABLET [Concomitant]
  14. COUMADIN [Concomitant]

REACTIONS (24)
  - BACTERIAL SEPSIS [None]
  - BRONCHOPULMONARY ASPERGILLOSIS [None]
  - CARDIO-RESPIRATORY ARREST [None]
  - COLON ADENOMA [None]
  - COMA [None]
  - COMPLICATIONS OF TRANSPLANTED HEART [None]
  - CYTOMEGALOVIRUS INFECTION [None]
  - DISSEMINATED INTRAVASCULAR COAGULATION [None]
  - ENCEPHALITIS [None]
  - FUNGAL SEPSIS [None]
  - HAEMODIALYSIS [None]
  - HEPARIN-INDUCED THROMBOCYTOPENIA [None]
  - HEPATIC FAILURE [None]
  - HERPES OESOPHAGITIS [None]
  - HERPES ZOSTER [None]
  - HYPOTENSION [None]
  - LEFT VENTRICULAR DYSFUNCTION [None]
  - OESOPHAGEAL ULCER [None]
  - PULMONARY GRANULOMA [None]
  - RENAL FAILURE [None]
  - RENAL TUBULAR NECROSIS [None]
  - TRANSFUSION REACTION [None]
  - TREMOR [None]
  - WOUND DEHISCENCE [None]
